FAERS Safety Report 9718214 (Version 1)
Quarter: 2013Q4

REPORT INFORMATION
  Report Type: Spontaneous
  Country: IT (occurrence: IT)
  Receive Date: 20131127
  Receipt Date: 20131127
  Transmission Date: 20140711
  Serious: Yes (Hospitalization, Other)
  Sender: FDA-Public Use
  Company Number: IT-WATSON-2013-21164

PATIENT
  Age: 71 Year
  Sex: Male

DRUGS (2)
  1. ACETAZOLAMIDE (WATSON LABORATORIES) [Suspect]
     Indication: OCULAR HYPERTENSION
     Dosage: 250 MG, SINGLE
     Route: 048
  2. ACETAZOLAMIDE (WATSON LABORATORIES) [Suspect]
     Dosage: UNK
     Route: 048

REACTIONS (4)
  - Angle closure glaucoma [Recovering/Resolving]
  - Choroidal detachment [Recovering/Resolving]
  - Choroidal effusion [Recovering/Resolving]
  - Papilloedema [Recovering/Resolving]
